FAERS Safety Report 5339015-8 (Version None)
Quarter: 2007Q2

REPORT INFORMATION
  Report Type: 
  Country: None (occurrence: None)
  Receive Date: 20070403
  Receipt Date: 20061127
  Transmission Date: 20071010
  Serious: Yes (Other)
  Sender: FDA-Public Use
  Company Number: 2006-0010725

PATIENT
  Age: 56 Year
  Sex: Male
  Weight: 71.0333 kg

DRUGS (11)
  1. TRUVADA [Suspect]
     Indication: HIV INFECTION
     Dosage: 300 MG, ORAL
     Route: 048
     Dates: start: 20050201, end: 20061113
  2. TENOFOVIR DISOPROXIL FUMARATE (TENOFOVIR DISOPROXIL FUMARATE) [Concomitant]
  3. REYATAZ [Concomitant]
  4. RITONAVIR (RITONAVIR) [Concomitant]
  5. ZIAGEN [Concomitant]
  6. ANDROGEL [Concomitant]
  7. FOSAMAX [Concomitant]
  8. ATENOLOL [Concomitant]
  9. ZYPREXA [Concomitant]
  10. WELLBUTRIN XL [Concomitant]
  11. CYMBAKTA (DULOXETINE HYDROCHLORIDE) [Concomitant]

REACTIONS (1)
  - RENAL FAILURE [None]
